FAERS Safety Report 14706244 (Version 1)
Quarter: 2018Q2

REPORT INFORMATION
  Report Type: Spontaneous
  Country: US (occurrence: US)
  Receive Date: 20180402
  Receipt Date: 20180402
  Transmission Date: 20180711
  Serious: No
  Sender: FDA-Public Use
  Company Number: US-BAYER-2018-060951

PATIENT
  Age: 54 Year
  Sex: Female

DRUGS (1)
  1. ALIQOPA [Suspect]
     Active Substance: COPANLISIB
     Indication: B-CELL LYMPHOMA
     Dosage: 60 MG DAILY
     Route: 042
     Dates: start: 20180322

REACTIONS (3)
  - Lip pruritus [None]
  - Tongue pruritus [None]
  - Dyspnoea [None]

NARRATIVE: CASE EVENT DATE: 20180322
